FAERS Safety Report 24898087 (Version 2)
Quarter: 2025Q3

REPORT INFORMATION
  Report Type: Report from Study
  Country: BR (occurrence: BR)
  Receive Date: 20250129
  Receipt Date: 20250908
  Transmission Date: 20251021
  Serious: Yes (Other)
  Sender: TAKEDA
  Company Number: BR-TAKEDA-2025TUS008882

PATIENT
  Age: 87 Year
  Sex: Female

DRUGS (3)
  1. VEDOLIZUMAB [Suspect]
     Active Substance: VEDOLIZUMAB
     Indication: Colitis ulcerative
  2. Prosso [Concomitant]
     Dosage: UNK UNK, QD
  3. Betrat [Concomitant]
     Dosage: UNK UNK, QD

REACTIONS (7)
  - Femur fracture [Not Recovered/Not Resolved]
  - Pelvic fracture [Recovered/Resolved]
  - Inappropriate schedule of product administration [Unknown]
  - Product availability issue [Unknown]
  - Fall [Unknown]
  - Osteoarthritis [Unknown]
  - Muscular weakness [Unknown]

NARRATIVE: CASE EVENT DATE: 20241201
